FAERS Safety Report 17399702 (Version 1)
Quarter: 2020Q1

REPORT INFORMATION
  Report Type: Spontaneous
  Country: ES (occurrence: ES)
  Receive Date: 20200211
  Receipt Date: 20200211
  Transmission Date: 20200409
  Serious: Yes (Hospitalization)
  Sender: FDA-Public Use
  Company Number: ES-TEVA-2020-ES-1183599

PATIENT
  Age: 86 Year
  Sex: Female

DRUGS (7)
  1. LOSARTAN 25 MG 28 COMPRIMIDOS [Concomitant]
     Indication: ESSENTIAL HYPERTENSION
     Dosage: 25 MG
     Route: 048
     Dates: start: 20191011
  2. BISOPROLOL 5 MG 60 COMPRIMIDOS [Suspect]
     Active Substance: BISOPROLOL
     Indication: CARDIAC ELECTROPHYSIOLOGIC STUDY
     Dosage: 5 MG
     Route: 048
     Dates: start: 20090603
  3. DIGOXINA TEOFARMA 0,25 MG COMPRIMIDOS , 50 COMPRIMIDOS [Concomitant]
     Active Substance: DIGOXIN
     Indication: ATRIAL FIBRILLATION
     Dosage: 0.25 MG
     Route: 048
     Dates: start: 20191016
  4. SINTROM [Suspect]
     Active Substance: ACENOCOUMAROL
     Indication: ARRHYTHMIA
     Dosage: 1 MG
     Route: 048
     Dates: start: 20190829
  5. LORAZEPAM 1 MG 50 COMPRIMIDOS [Concomitant]
     Active Substance: LORAZEPAM
     Indication: ANXIETY
     Dosage: 1 MG
     Route: 048
     Dates: start: 20191011
  6. ALOPURINOL 300 MG 30 COMPRIMIDOS [Concomitant]
     Indication: GOUT
     Dosage: 300 MG
     Route: 048
     Dates: start: 20121221
  7. METFORMINA 850 MG 50 COMPRIMIDOS [Concomitant]
     Indication: TYPE 2 DIABETES MELLITUS
     Dosage: 850 MG
     Route: 048
     Dates: start: 20090721

REACTIONS (3)
  - International normalised ratio increased [Recovering/Resolving]
  - Intercepted medication error [Recovering/Resolving]
  - Tachycardia [Recovering/Resolving]

NARRATIVE: CASE EVENT DATE: 20200120
